FAERS Safety Report 6111134-8 (Version None)
Quarter: 2009Q1

REPORT INFORMATION
  Report Type: 
  Country: None (occurrence: None)
  Receive Date: 20090309
  Receipt Date: 20090309
  Transmission Date: 20090719
  Serious: Yes (Disabling)
  Sender: FDA-Public Use
  Company Number: None

PATIENT
  Age: 41 Year
  Sex: Male

DRUGS (1)
  1. SULFAMETHOXAZOLE AND TRIMETHOPRIM [Suspect]
     Indication: PNEUMOCYSTIS JIROVECI PNEUMONIA
     Dosage: 2 TABLETS TWICE DAILY PO
     Route: 048
     Dates: start: 20081212, end: 20081213

REACTIONS (5)
  - HEPATIC FUNCTION ABNORMAL [None]
  - JAUNDICE [None]
  - RASH [None]
  - RENAL IMPAIRMENT [None]
  - SKIN EXFOLIATION [None]
